FAERS Safety Report 11796179 (Version 1)
Quarter: 2015Q4

REPORT INFORMATION
  Report Type: Spontaneous
  Country: CH (occurrence: CH)
  Receive Date: 20151203
  Receipt Date: 20151203
  Transmission Date: 20160305
  Serious: No
  Sender: FDA-Public Use
  Company Number: CH-GLENMARK PHARMACEUTICALS INC, USA.-2015GMK015033

PATIENT
  Age: 53 Year
  Sex: Female

DRUGS (1)
  1. PRAMIPEXOLE DIHYDROCHLORIDE. [Suspect]
     Active Substance: PRAMIPEXOLE DIHYDROCHLORIDE
     Indication: RESTLESS LEGS SYNDROME
     Dosage: 0.18 MG, QD
     Dates: start: 200909

REACTIONS (1)
  - Hypersexuality [Recovered/Resolved]
